FAERS Safety Report 16132331 (Version 1)
Quarter: 2019Q1

REPORT INFORMATION
  Report Type: Spontaneous
  Country: US (occurrence: US)
  Receive Date: 20190226
  Receipt Date: 20190226
  Transmission Date: 20190418
  Serious: Yes (Life-Threatening, Hospitalization)
  Sender: FDA-Public Use
  Company Number: None

PATIENT
  Age: 39 Year
  Sex: Female
  Weight: 80.74 kg

DRUGS (1)
  1. RIFAMPIN 300MG CAPSULES [Suspect]
     Active Substance: RIFAMPIN
     Indication: EXPOSURE TO COMMUNICABLE DISEASE
     Route: 048
     Dates: start: 20190107, end: 20190129

REACTIONS (8)
  - Shock [None]
  - Dyspnoea [None]
  - Pyrexia [None]
  - Respiratory distress [None]
  - Rash [None]
  - Anaphylactoid reaction [None]
  - Abdominal pain [None]
  - Pruritus [None]

NARRATIVE: CASE EVENT DATE: 20190129
